FAERS Safety Report 7409353-3 (Version None)
Quarter: 2011Q2

REPORT INFORMATION
  Report Type: 
  Country: None (occurrence: None)
  Receive Date: 20110412
  Receipt Date: 20110407
  Transmission Date: 20111010
  Serious: Yes (Other)
  Sender: FDA-Public Use
  Company Number: US-ABBOTT-11P-163-0717789-00

PATIENT
  Sex: Female
  Weight: 49.032 kg

DRUGS (6)
  1. LEVOXYL [Concomitant]
     Indication: THYROID DISORDER
  2. BOSCH + LOMB PRESERV-VISION [Concomitant]
     Indication: MACULAR DEGENERATION
  3. AMOXICILLIN [Suspect]
     Indication: GASTROINTESTINAL BACTERIAL INFECTION
     Route: 048
  4. DOXYCYCLINE [Concomitant]
     Indication: ROSACEA
     Route: 048
  5. DOXYCYCLINE [Concomitant]
     Indication: ERYTHEMA OF EYELID
  6. BIAXIN [Suspect]
     Indication: GASTROINTESTINAL BACTERIAL INFECTION
     Route: 048

REACTIONS (2)
  - SWOLLEN TONGUE [None]
  - BLOOD PRESSURE INCREASED [None]
